FAERS Safety Report 7070791-2 (Version None)
Quarter: 2010Q4

REPORT INFORMATION
  Report Type: 
  Country: None (occurrence: None)
  Receive Date: 20101027
  Receipt Date: 20101027
  Transmission Date: 20110411
  Serious: Yes (Hospitalization)
  Sender: FDA-Public Use
  Company Number: None

PATIENT
  Age: 14 Month
  Sex: Female
  Weight: 8.6183 kg

DRUGS (3)
  1. TEETHING TABLETS HYLANDS [Suspect]
     Indication: ORAL PAIN
     Dosage: 2 TO 3 TABLETS 4 TIMES PER DAY PO
     Route: 048
     Dates: start: 20101021, end: 20101025
  2. TEETHING TABLETS HYLANDS [Suspect]
     Indication: RHINORRHOEA
     Dosage: 2 TO 3 TABLETS 4 TIMES PER DAY PO
     Route: 048
     Dates: start: 20101021, end: 20101025
  3. TEETHING TABLETS HYLANDS [Suspect]
     Indication: TEETHING
     Dosage: 2 TO 3 TABLETS 4 TIMES PER DAY PO
     Route: 048
     Dates: start: 20101021, end: 20101025

REACTIONS (5)
  - CONVULSION [None]
  - EAR INFECTION [None]
  - PRODUCT QUALITY ISSUE [None]
  - PYREXIA [None]
  - ROSEOLA [None]
